FAERS Safety Report 5926261-5 (Version None)
Quarter: 2008Q4

REPORT INFORMATION
  Report Type: 
  Country: None (occurrence: None)
  Receive Date: 20081022
  Receipt Date: 20081016
  Transmission Date: 20090506
  Serious: Yes (Hospitalization)
  Sender: FDA-Public Use
  Company Number: FR-WYE-G02370208

PATIENT
  Sex: Female

DRUGS (3)
  1. ADVIL [Suspect]
     Indication: MUSCULOSKELETAL CHEST PAIN
     Dosage: UNKNOWN
     Route: 048
     Dates: start: 20080905, end: 20080908
  2. TAREG [Concomitant]
     Indication: HYPERTENSION
     Route: 048
  3. AMLOD [Concomitant]
     Indication: HYPERTENSION
     Route: 048

REACTIONS (15)
  - ALANINE AMINOTRANSFERASE INCREASED [None]
  - ASPARTATE AMINOTRANSFERASE INCREASED [None]
  - BACTERIAL PYELONEPHRITIS [None]
  - BLOOD ALKALINE PHOSPHATASE INCREASED [None]
  - DEHYDRATION [None]
  - DIARRHOEA [None]
  - DUODENITIS [None]
  - ESCHERICHIA INFECTION [None]
  - GAMMA-GLUTAMYLTRANSFERASE INCREASED [None]
  - GASTRITIS [None]
  - HAEMATEMESIS [None]
  - MELAENA [None]
  - OESOPHAGITIS [None]
  - POLLAKIURIA [None]
  - RENAL FAILURE ACUTE [None]
